FAERS Safety Report 8688369 (Version 9)
Quarter: 2013Q3

REPORT INFORMATION
  Report Type: Spontaneous
  Country: US (occurrence: US)
  Receive Date: 20120727
  Receipt Date: 20130821
  Transmission Date: 20140515
  Serious: Yes (Hospitalization, Other)
  Sender: FDA-Public Use
  Company Number: US-MSD-1207USA005862

PATIENT
  Sex: Female
  Weight: 56.24 kg

DRUGS (10)
  1. FOSAMAX [Suspect]
     Indication: OSTEOPENIA
     Dosage: 70 MG, UNK
     Route: 048
     Dates: start: 20100801, end: 201103
  2. FOSAMAX [Suspect]
     Dosage: 70 MG, UNK
     Route: 048
     Dates: start: 200809, end: 200904
  3. FOSAMAX [Suspect]
     Dosage: 70 MG, UNK
     Route: 048
     Dates: start: 1999, end: 200808
  4. FOSAMAX [Suspect]
     Indication: OSTEOPENIA
     Dosage: 70 MG, QW
     Route: 048
     Dates: start: 20110311, end: 20110426
  5. ALENDRONATE SODIUM [Suspect]
     Indication: OSTEOPENIA
     Dosage: 70 MG, UNK
     Route: 048
     Dates: start: 20080818, end: 200809
  6. ALENDRONATE SODIUM [Suspect]
     Dosage: 70 MG, UNK
     Route: 048
     Dates: start: 20090408, end: 201007
  7. CENTRUM (MINERALS (UNSPECIFIED) (+) VITAMINS (UNSPECIFIED)) [Concomitant]
     Dosage: UNK
     Dates: start: 1997
  8. TUMS [Concomitant]
     Indication: OSTEOPENIA
     Dosage: UNK
  9. PREMARIN [Concomitant]
     Dosage: UNK
     Dates: start: 1990, end: 201104
  10. VITAMIN D (UNSPECIFIED) [Concomitant]
     Indication: PRODUCT USED FOR UNKNOWN INDICATION

REACTIONS (31)
  - Open reduction of fracture [Unknown]
  - Metastases to bone [Unknown]
  - Hip arthroplasty [Recovering/Resolving]
  - Knee arthroplasty [Recovering/Resolving]
  - Cellulitis [Recovering/Resolving]
  - Atelectasis [Unknown]
  - Femur fracture [Recovered/Resolved]
  - Osteoporosis [Unknown]
  - Low turnover osteopathy [Unknown]
  - Dental implantation [Unknown]
  - Aneurysmal bone cyst [Unknown]
  - Osteoarthritis [Unknown]
  - Cataract operation [Unknown]
  - Cataract [Unknown]
  - Macular degeneration [Unknown]
  - Spinal osteoarthritis [Unknown]
  - Anaemia [Unknown]
  - Muscle spasms [Unknown]
  - Treatment noncompliance [Unknown]
  - Haemangioma of bone [Unknown]
  - Haemangioma removal [Recovering/Resolving]
  - Spondylolisthesis [Unknown]
  - Contusion [Unknown]
  - Fall [Unknown]
  - Device issue [Unknown]
  - Bursitis [Not Recovered/Not Resolved]
  - Osteonecrosis [Unknown]
  - Arthritis [Unknown]
  - Foot fracture [Unknown]
  - Bone lesion [Unknown]
  - Tendonitis [Not Recovered/Not Resolved]
